FAERS Safety Report 25260391 (Version 1)
Quarter: 2025Q2

REPORT INFORMATION
  Report Type: Spontaneous
  Country: US (occurrence: US)
  Receive Date: 20250501
  Receipt Date: 20250501
  Transmission Date: 20250717
  Serious: No
  Sender: MERCK SHARP & DOHME LLC
  Company Number: US-009507513-2280036

PATIENT
  Sex: Female

DRUGS (2)
  1. KEYTRUDA [Suspect]
     Active Substance: PEMBROLIZUMAB
     Indication: Endometrial cancer
  2. LENVIMA [Suspect]
     Active Substance: LENVATINIB
     Indication: Endometrial cancer
     Route: 048
     Dates: start: 20241107

REACTIONS (3)
  - Rash [Recovering/Resolving]
  - Product use issue [Unknown]
  - Inappropriate schedule of product administration [Unknown]

NARRATIVE: CASE EVENT DATE: 20241107
